FAERS Safety Report 8942353 (Version 2)
Quarter: 2012Q4

REPORT INFORMATION
  Report Type: Spontaneous
  Country: US (occurrence: None)
  Receive Date: 20121123
  Receipt Date: 20121221
  Transmission Date: 20130627
  Serious: Yes (Death, Hospitalization)
  Sender: FDA-Public Use
  Company Number: UTC-025151

PATIENT
  Age: 15 Year
  Sex: Female
  Weight: 33.2 kg

DRUGS (4)
  1. TYVASO (6 MICROGRAM,  AEROSOL FOR INHALATION) (TREPROSTINIL SODIUM) [Suspect]
     Indication: PRIMARY PULMONARY HYPERTENSION
     Dosage: 144  mcg  (36  mcg,  4 in 1 D),  Inhalation
     Route: 055
     Dates: start: 20101030
  2. ADCIRCA (TADALAFIL) [Concomitant]
  3. REVATIO (SILDENAFIL CITRATE) [Concomitant]
  4. TRACLEER (BOSENTAN) [Concomitant]

REACTIONS (4)
  - Pulmonary arterial hypertension [None]
  - Condition aggravated [None]
  - Post procedural complication [None]
  - Procedural complication [None]
